FAERS Safety Report 16685842 (Version 1)
Quarter: 2019Q3

REPORT INFORMATION
  Report Type: Spontaneous
  Country: ES (occurrence: ES)
  Receive Date: 20190809
  Receipt Date: 20190809
  Transmission Date: 20191004
  Serious: Yes (Other)
  Sender: FDA-Public Use
  Company Number: ES-ROCHE-2372999

PATIENT
  Age: 85 Year
  Sex: Male

DRUGS (12)
  1. SITAGLIPTIN [Concomitant]
     Active Substance: SITAGLIPTIN
  2. CARDYL [Concomitant]
     Active Substance: ATORVASTATIN CALCIUM
  3. RITUXIMAB. [Suspect]
     Active Substance: RITUXIMAB
     Indication: LYMPHOMA
     Route: 058
     Dates: start: 20190321, end: 20190701
  4. EUTIROX [Concomitant]
     Active Substance: LEVOTHYROXINE SODIUM
     Route: 065
  5. IRBESARTAN. [Concomitant]
     Active Substance: IRBESARTAN
  6. PEPTICUM [Concomitant]
     Active Substance: OMEPRAZOLE
     Route: 065
  7. LEVODOPA/CARBIDOPA [Concomitant]
     Active Substance: CARBIDOPA\LEVODOPA
  8. HIBOR [Concomitant]
  9. ALLOPURINOL. [Concomitant]
     Active Substance: ALLOPURINOL
  10. METFORMIN [Concomitant]
     Active Substance: METFORMIN HYDROCHLORIDE
     Route: 065
  11. GLIMEPIRIDA [Concomitant]
     Active Substance: GLIMEPIRIDE
  12. PLANTAGO OVATA [Concomitant]
     Active Substance: HERBALS\PLANTAGO OVATA LEAF

REACTIONS (1)
  - Progressive multifocal leukoencephalopathy [Recovering/Resolving]

NARRATIVE: CASE EVENT DATE: 20190717
